FAERS Safety Report 16409826 (Version 1)
Quarter: 2019Q2

REPORT INFORMATION
  Report Type: Spontaneous
  Country: US (occurrence: US)
  Receive Date: 20190610
  Receipt Date: 20190610
  Transmission Date: 20190711
  Serious: No
  Sender: FDA-Public Use
  Company Number: US-PFIZER INC-2019238399

PATIENT
  Age: 73 Year
  Sex: Female
  Weight: 81.63 kg

DRUGS (1)
  1. DOXYCYCLINE HYCLATE. [Suspect]
     Active Substance: DOXYCYCLINE HYCLATE
     Indication: BACTERIAL INFECTION
     Dosage: 1 DF, 3X/DAY (1 PILL, EVERY 8 HOURS, 14 DAYS)
     Dates: start: 20190603

REACTIONS (3)
  - Nausea [Unknown]
  - Product complaint [Unknown]
  - Vomiting [Unknown]
